FAERS Safety Report 14343019 (Version 1)
Quarter: 2017Q4

REPORT INFORMATION
  Report Type: Spontaneous
  Country: US (occurrence: US)
  Receive Date: 20171230
  Receipt Date: 20171230
  Transmission Date: 20180321
  Serious: Yes (Disabling)
  Sender: FDA-Public Use
  Company Number: None

PATIENT
  Age: 53 Year
  Sex: Female
  Weight: 65.7 kg

DRUGS (9)
  1. PROBIOTICS [Concomitant]
     Active Substance: PROBIOTICS NOS
  2. VITAMIN D [Concomitant]
     Active Substance: CHOLECALCIFEROL
  3. MYCOTOXIN INHIBITOR DROPS [Concomitant]
  4. VITAMIN C [Concomitant]
     Active Substance: ASCORBIC ACID
  5. UVA URSI [Concomitant]
  6. CIPROFLOXACIN. [Suspect]
     Active Substance: CIPROFLOXACIN
     Indication: URINARY TRACT INFECTION
     Dosage: ?          QUANTITY:6 TABLET(S);?
     Route: 048
     Dates: start: 20171031, end: 20171102
  7. RAW ZINC [Concomitant]
  8. PROTEIN POWDER [Concomitant]
  9. MULTI [Concomitant]

REACTIONS (13)
  - Musculoskeletal stiffness [None]
  - Back pain [None]
  - Localised infection [None]
  - Pelvic pain [None]
  - Arthralgia [None]
  - Blood lactic acid [None]
  - Blood magnesium decreased [None]
  - Swelling [None]
  - Antinuclear antibody increased [None]
  - Autoimmune disorder [None]
  - Musculoskeletal chest pain [None]
  - Urinary tract infection [None]
  - Influenza like illness [None]

NARRATIVE: CASE EVENT DATE: 20171031
